FAERS Safety Report 8732877 (Version 2)
Quarter: 2013Q4

REPORT INFORMATION
  Report Type: Spontaneous
  Country: US (occurrence: US)
  Receive Date: 20120820
  Receipt Date: 20131101
  Transmission Date: 20140711
  Serious: No
  Sender: FDA-Public Use
  Company Number: US-009507513-1208USA006348

PATIENT
  Age: 3 Year
  Sex: Male

DRUGS (1)
  1. COPPERTONE WATER BABIES PURE + SIMPLE LOTION SPF 50 [Suspect]
     Indication: PRODUCT USED FOR UNKNOWN INDICATION
     Dosage: UNK, ONCE
     Route: 061
     Dates: start: 201205

REACTIONS (2)
  - Erythema [Recovered/Resolved]
  - Swelling face [Recovered/Resolved]
